FAERS Safety Report 19615041 (Version 4)
Quarter: 2021Q3

REPORT INFORMATION
  Report Type: Report from Study
  Country: US (occurrence: US)
  Receive Date: 20210727
  Receipt Date: 20210920
  Transmission Date: 20211014
  Serious: Yes (Hospitalization)
  Sender: FDA-Public Use
  Company Number: US-EISAI MEDICAL RESEARCH-EC-2021-096663

PATIENT
  Age: 75 Year
  Sex: Female

DRUGS (28)
  1. OXYCODONE HYDROCHLORIDE. [Concomitant]
     Active Substance: OXYCODONE HYDROCHLORIDE
  2. LENVIMA [Suspect]
     Active Substance: LENVATINIB
     Indication: RENAL CANCER
     Route: 048
     Dates: start: 20210423, end: 202104
  3. BIOTIN [Concomitant]
     Active Substance: BIOTIN
  4. AMOXICILLIN. [Concomitant]
     Active Substance: AMOXICILLIN
  5. LENVIMA [Suspect]
     Active Substance: LENVATINIB
     Route: 048
     Dates: start: 20210511, end: 20210521
  6. PROBIOTIC [Concomitant]
     Active Substance: PROBIOTICS NOS
     Dosage: 100 B CELL
  7. OMEPRAZOLE. [Concomitant]
     Active Substance: OMEPRAZOLE
  8. OMEGA?3 ACIDS [Concomitant]
     Active Substance: OMEGA-3 FATTY ACIDS
  9. METOPROLOL SUCCINATE. [Concomitant]
     Active Substance: METOPROLOL SUCCINATE
  10. IMODIUM [Concomitant]
     Active Substance: LOPERAMIDE HYDROCHLORIDE
  11. CRANBERRY. [Concomitant]
     Active Substance: CRANBERRY
  12. VITAMIN C [Concomitant]
     Active Substance: ASCORBIC ACID
  13. LORATADINE. [Concomitant]
     Active Substance: LORATADINE
  14. CLONIDINE. [Concomitant]
     Active Substance: CLONIDINE
     Dosage: 0.1MG/24HR
  15. KEYTRUDA [Concomitant]
     Active Substance: PEMBROLIZUMAB
     Dosage: 100 MG/4 ML
  16. IPRATROPIUM BROMIDE. [Concomitant]
     Active Substance: IPRATROPIUM BROMIDE
  17. ATORVASTATIN CALCIUM. [Concomitant]
     Active Substance: ATORVASTATIN CALCIUM
  18. GLUCOSAMINE?CHONDROITIN?MSM [Concomitant]
  19. LENVIMA [Suspect]
     Active Substance: LENVATINIB
     Dosage: UNKNOWN DOSE
     Route: 048
     Dates: start: 20210813
  20. XARELTO [Concomitant]
     Active Substance: RIVAROXABAN
  21. LISINOPRIL. [Concomitant]
     Active Substance: LISINOPRIL
  22. LEVOTHYROXINE. [Concomitant]
     Active Substance: LEVOTHYROXINE
  23. LENVIMA [Suspect]
     Active Substance: LENVATINIB
     Route: 048
     Dates: start: 202106, end: 20210716
  24. CALCIUM CITRATE [Concomitant]
     Active Substance: CALCIUM CITRATE
  25. VITAMIN D3 [Concomitant]
     Active Substance: CHOLECALCIFEROL
  26. ALLOPURINOL. [Concomitant]
     Active Substance: ALLOPURINOL
  27. ASPIRIN. [Concomitant]
     Active Substance: ASPIRIN
  28. FUROSEMIDE. [Concomitant]
     Active Substance: FUROSEMIDE

REACTIONS (3)
  - Gallbladder disorder [Unknown]
  - Weight decreased [Unknown]
  - Decreased appetite [Unknown]

NARRATIVE: CASE EVENT DATE: 2021
